FAERS Safety Report 16952480 (Version 1)
Quarter: 2019Q4

REPORT INFORMATION
  Report Type: Spontaneous
  Country: US (occurrence: US)
  Receive Date: 20191022
  Receipt Date: 20191022
  Transmission Date: 20200122
  Serious: Yes (Other)
  Sender: FDA-Public Use
  Company Number: None

PATIENT
  Age: 57 Year
  Sex: Male
  Weight: 58.5 kg

DRUGS (8)
  1. LISINOPRIL. [Concomitant]
     Active Substance: LISINOPRIL
  2. GLUCOSSAMINE CHONDROITN [Concomitant]
  3. FISH OIL [Concomitant]
     Active Substance: FISH OIL
  4. TESTOSTERONE GEL 1.62% [Suspect]
     Active Substance: TESTOSTERONE
     Indication: BLOOD TESTOSTERONE DECREASED
     Dosage: ?          QUANTITY:4 PUMPS;?
     Route: 061
  5. GARLIC. [Concomitant]
     Active Substance: GARLIC
  6. OLOPATADINE. [Concomitant]
     Active Substance: OLOPATADINE
  7. ALLEGRA [Concomitant]
     Active Substance: FEXOFENADINE HYDROCHLORIDE
  8. FLONASE [Concomitant]
     Active Substance: FLUTICASONE PROPIONATE

REACTIONS (2)
  - Blood testosterone decreased [None]
  - Product substitution issue [None]

NARRATIVE: CASE EVENT DATE: 20190923
